FAERS Safety Report 5152854-1 (Version None)
Quarter: 2006Q4

REPORT INFORMATION
  Report Type: 
  Country: None (occurrence: None)
  Receive Date: 20060918
  Receipt Date: 20051003
  Transmission Date: 20070319
  Serious: Yes (Other)
  Sender: FDA-Public Use
  Company Number: PHEH2005US10983

PATIENT
  Age: 54 Year
  Sex: Female

DRUGS (3)
  1. FEMARA [Suspect]
     Indication: BREAST CANCER
     Dosage: 2.5 MG, QD
     Dates: start: 20050930
  2. ARIMIDEX [Suspect]
     Indication: BREAST CANCER
     Dosage: 1 MG, QD
     Dates: start: 20050101, end: 20050930
  3. AVALIDE (HYDROCHLOROTHIAZIDE, IBESARTAN) [Concomitant]

REACTIONS (1)
  - HYPERTENSION [None]
